FAERS Safety Report 14392481 (Version 1)
Quarter: 2018Q1

REPORT INFORMATION
  Report Type: Spontaneous
  Country: US (occurrence: US)
  Receive Date: 20180112
  Receipt Date: 20180112
  Transmission Date: 20180509
  Serious: Yes (Other)
  Sender: FDA-Public Use
  Company Number: None

PATIENT
  Age: 36 Year
  Sex: Female
  Weight: 103.05 kg

DRUGS (6)
  1. SINGULAIRE [Concomitant]
  2. BREO ELLIPTA [Concomitant]
     Active Substance: FLUTICASONE FUROATE\VILANTEROL TRIFENATATE
  3. FASENRA [Suspect]
     Active Substance: BENRALIZUMAB
     Indication: ASTHMA
     Dosage: ?          OTHER FREQUENCY:ONE TIME FIRST DOS;?
     Route: 058
     Dates: start: 20180110, end: 20180110
  4. FLONASE [Concomitant]
     Active Substance: FLUTICASONE PROPIONATE
  5. XOPENEX HFA [Concomitant]
     Active Substance: LEVALBUTEROL TARTRATE
  6. DUONEB [Concomitant]
     Active Substance: ALBUTEROL SULFATE\IPRATROPIUM BROMIDE

REACTIONS (2)
  - Swelling face [None]
  - Swollen tongue [None]

NARRATIVE: CASE EVENT DATE: 20180110
